FAERS Safety Report 11234805 (Version 2)
Quarter: 2015Q3

REPORT INFORMATION
  Report Type: Spontaneous
  Country: FR (occurrence: FR)
  Receive Date: 20150702
  Receipt Date: 20150804
  Transmission Date: 20151125
  Serious: Yes (Other)
  Sender: FDA-Public Use
  Company Number: FR-GLAXOSMITHKLINE-FR2015GSK093810

PATIENT
  Age: 19 Year
  Sex: Male

DRUGS (1)
  1. ATOVAQUONE + PROGUANIL BIOGARAN [Suspect]
     Active Substance: ATOVAQUONE\PROGUANIL HYDROCHLORIDE
     Indication: MALARIA PROPHYLAXIS
     Dosage: 1 DF, 1D
     Route: 048
     Dates: start: 20150604, end: 20150613

REACTIONS (9)
  - Depression [Recovering/Resolving]
  - Anger [Recovering/Resolving]
  - Bipolar disorder [Recovering/Resolving]
  - Panic attack [Recovering/Resolving]
  - Crying [Recovering/Resolving]
  - Middle insomnia [Recovering/Resolving]
  - Anxiety [Recovering/Resolving]
  - Crying [Recovering/Resolving]
  - Poor quality sleep [Recovering/Resolving]

NARRATIVE: CASE EVENT DATE: 20150608
